FAERS Safety Report 10219402 (Version 4)
Quarter: 2015Q2

REPORT INFORMATION
  Report Type: Spontaneous
  Country: JP (occurrence: JP)
  Receive Date: 20140605
  Receipt Date: 20150626
  Transmission Date: 20150821
  Serious: Yes (Hospitalization, Other)
  Sender: FDA-Public Use
  Company Number: JP-UCBSA-123164

PATIENT
  Age: 40 Year
  Sex: Male

DRUGS (5)
  1. KEPPRA [Suspect]
     Active Substance: LEVETIRACETAM
     Indication: EPILEPSY
     Dosage: 2000 MG, ONCE DAILY (QD), STRENGTH: 500 MG
     Route: 048
     Dates: start: 20120731, end: 20130218
  2. ALEVIATIN [Suspect]
     Active Substance: PHENYTOIN SODIUM
     Dosage: DAILY DOSE: 300MG
     Route: 048
     Dates: start: 20060508, end: 20140415
  3. BENZALIN [Concomitant]
     Active Substance: NITRAZEPAM
     Dosage: 10 MG, ONCE DAILY (QD)
     Route: 048
     Dates: start: 20120605, end: 20140415
  4. SELENICA-R [Suspect]
     Active Substance: SELENIUM
     Dosage: 1300 MG, ONCE DAILY (QD)
     Route: 048
     Dates: start: 20120117, end: 20140415
  5. KEPPRA [Suspect]
     Active Substance: LEVETIRACETAM
     Dosage: 3000 MG, ONCE DAILY (QD)
     Route: 048
     Dates: start: 20130219, end: 20140415

REACTIONS (2)
  - Gait disturbance [Recovered/Resolved with Sequelae]
  - Prostatic abscess [Recovering/Resolving]

NARRATIVE: CASE EVENT DATE: 201310
